FAERS Safety Report 4296981-X (Version None)
Quarter: 2004Q1

REPORT INFORMATION
  Report Type: 
  Country: None (occurrence: None)
  Receive Date: 20040213
  Receipt Date: 20040204
  Transmission Date: 20041129
  Serious: Yes (Death, Other)
  Sender: FDA-Public Use
  Company Number: 2004005103

PATIENT
  Age: 1 Month
  Sex: 0
  Weight: 0.7 kg

DRUGS (2)
  1. DIFLUCAN [Suspect]
     Indication: C-REACTIVE PROTEIN INCREASED
     Dosage: 35 MG , INTRAVENOUS
     Route: 042
     Dates: start: 20040102, end: 20040112
  2. CEFOZOPRAN HYDROCHLORIDE (CEFOZOPRAN HYDROCHLORIDE) [Suspect]
     Indication: FUNGAL INFECTION
     Dosage: INTRAVENOUS
     Route: 042
     Dates: start: 20040101, end: 20040113

REACTIONS (4)
  - ALANINE AMINOTRANSFERASE INCREASED [None]
  - ASPARTATE AMINOTRANSFERASE INCREASED [None]
  - BILIRUBIN CONJUGATED INCREASED [None]
  - HEPATOMEGALY [None]
